FAERS Safety Report 8126071-7 (Version None)
Quarter: 2012Q1

REPORT INFORMATION
  Report Type: 
  Country: None (occurrence: None)
  Receive Date: 20120209
  Receipt Date: 20120127
  Transmission Date: 20120608
  Serious: Yes (Other)
  Sender: FDA-Public Use
  Company Number: PHHY2012FI007541

PATIENT
  Sex: Male

DRUGS (3)
  1. CLOZAPINE [Suspect]
     Indication: PSYCHOTIC DISORDER
     Dosage: 350 MG/DAY
     Dates: start: 20110801
  2. ZYPREXA [Suspect]
     Dosage: UNK UKN, UNK
     Dates: start: 20110101
  3. SERONIL [Concomitant]
     Dosage: UNK UKN, UNK

REACTIONS (1)
  - OCULOGYRIC CRISIS [None]
